FAERS Safety Report 8782994 (Version 2)
Quarter: 2012Q4

REPORT INFORMATION
  Report Type: 
  Country: US (occurrence: US)
  Receive Date: 20120913
  Receipt Date: 20121115
  Transmission Date: 20130627
  Serious: No
  Sender: FDA-Public Use
  Company Number: US-VERTEX PHARMACEUTICAL INC.-AE-2012-009716

PATIENT
  Weight: 113.4 kg

DRUGS (7)
  1. VX-950 (TELAPREVIR) [Suspect]
     Indication: HEPATITIS C
     Dosage: 750 mg, tid
     Route: 048
     Dates: start: 201206
  2. RIBAVIRIN [Concomitant]
     Indication: HEPATITIS C
     Dates: start: 201206
  3. PEG-INTRON [Concomitant]
     Indication: HEPATITIS C
     Route: 058
     Dates: start: 201206
  4. VALIUM                             /00017001/ [Concomitant]
     Dosage: UNK, bid
  5. SEROQUEL XR [Concomitant]
     Dosage: UNK, qd
  6. SEROQUEL XR [Concomitant]
     Dosage: UNK, qd
  7. VYVANSE [Concomitant]
     Dosage: UNK, qd

REACTIONS (4)
  - Influenza like illness [Unknown]
  - Headache [Unknown]
  - Myalgia [Unknown]
  - Feeling abnormal [Unknown]
